FAERS Safety Report 12963625 (Version 1)
Quarter: 2016Q4

REPORT INFORMATION
  Report Type: Report from Study
  Country: US (occurrence: US)
  Receive Date: 20161122
  Receipt Date: 20161122
  Transmission Date: 20170207
  Serious: Yes (Death, Other)
  Sender: FDA-Public Use
  Company Number: US-ROCHE-1857982

PATIENT
  Sex: Female

DRUGS (3)
  1. PACLITAXEL. [Suspect]
     Active Substance: PACLITAXEL
     Indication: BREAST CANCER METASTATIC
     Dosage: ON THE FIRST TREATMENT WEEK (WK), 90 MG/M2 IV OVER 1 HOUR ON DAY 1. ?ON SUBSEQUENT WEEKS, 90 MG/M2 I
     Route: 042
  2. TRASTUZUMAB [Suspect]
     Active Substance: TRASTUZUMAB
     Dosage: ON SUBSEQUENT WEEKS: 2 MG/KG OVER 30 MINUTES
     Route: 042
  3. TRASTUZUMAB [Suspect]
     Active Substance: TRASTUZUMAB
     Indication: BREAST CANCER METASTATIC
     Dosage: ON THE FIRST TREATMENT WEEK : OVER 90 MINUTES ON DAY 0
     Route: 042

REACTIONS (3)
  - Acute respiratory failure [Fatal]
  - Myocardial infarction [Unknown]
  - Pneumonia influenzal [Fatal]
